FAERS Safety Report 16706157 (Version 2)
Quarter: 2020Q3

REPORT INFORMATION
  Report Type: Spontaneous
  Country: US (occurrence: US)
  Receive Date: 20190815
  Receipt Date: 20200908
  Transmission Date: 20201102
  Serious: No
  Sender: FDA-Public Use
  Company Number: US-PFIZER INC-2019347944

PATIENT
  Age: 55 Year
  Sex: Female

DRUGS (2)
  1. IBRANCE [Suspect]
     Active Substance: PALBOCICLIB
     Dosage: 125 MG, CYCLIC (21 DAYS, THEN OFF FOR 7 DAYS)
     Route: 048
     Dates: start: 201909
  2. IBRANCE [Suspect]
     Active Substance: PALBOCICLIB
     Indication: BREAST CANCER FEMALE
     Dosage: 125 MG, CYCLIC [DAILY FOR 21 DAYS, HOLD FOR 7 DAYS]
     Route: 048
     Dates: start: 20190522

REACTIONS (1)
  - Photosensitivity reaction [Unknown]
